FAERS Safety Report 11820542 (Version 1)
Quarter: 2015Q4

REPORT INFORMATION
  Report Type: Spontaneous
  Country: US (occurrence: US)
  Receive Date: 20151210
  Receipt Date: 20151210
  Transmission Date: 20160305
  Serious: No
  Sender: FDA-Public Use
  Company Number: US-JNJFOC-20150708282

PATIENT
  Age: 73 Year
  Sex: Male

DRUGS (9)
  1. SENOKOT [Concomitant]
     Active Substance: SENNOSIDES
  2. FUROSEMIDE. [Concomitant]
     Active Substance: FUROSEMIDE
  3. CYMBALTA [Concomitant]
     Active Substance: DULOXETINE HYDROCHLORIDE
  4. BACTRIM [Concomitant]
     Active Substance: SULFAMETHOXAZOLE\TRIMETHOPRIM
  5. IMBRUVICA [Suspect]
     Active Substance: IBRUTINIB
     Indication: CHRONIC LYMPHOCYTIC LEUKAEMIA
     Route: 048
     Dates: start: 20150221
  6. GABAPENTIN. [Concomitant]
     Active Substance: GABAPENTIN
  7. PREDNISONE. [Concomitant]
     Active Substance: PREDNISONE
  8. HUMULIN R [Concomitant]
     Active Substance: INSULIN HUMAN
  9. PROTONIX [Concomitant]
     Active Substance: PANTOPRAZOLE SODIUM

REACTIONS (2)
  - Incorrect dose administered [Not Recovered/Not Resolved]
  - White blood cell count decreased [Unknown]

NARRATIVE: CASE EVENT DATE: 20150221
